FAERS Safety Report 8539736-X (Version None)
Quarter: 2012Q3

REPORT INFORMATION
  Report Type: 
  Country: None (occurrence: None)
  Receive Date: 20120726
  Receipt Date: 20120214
  Transmission Date: 20120928
  Serious: No
  Sender: FDA-Public Use
  Company Number: US-ASTRAZENECA-2010SE27134

PATIENT
  Sex: Female
  Weight: 70.3 kg

DRUGS (31)
  1. SEROQUEL [Suspect]
     Indication: ANXIETY
     Dosage: 150 MG IMMEDIATE RELEASE
     Route: 048
  2. SEROQUEL [Suspect]
     Dosage: 50 MG TWICE A WEEK, IMMEDIATE RELEASE
     Route: 048
  3. SEROQUEL [Suspect]
     Route: 048
  4. SEROQUEL [Suspect]
     Route: 048
  5. SEROQUEL [Suspect]
     Route: 048
  6. CLONAZEPAM [Concomitant]
  7. SEROQUEL [Suspect]
     Dosage: 50 MG TWICE A WEEK, IMMEDIATE RELEASE
     Route: 048
  8. SEROQUEL [Suspect]
     Route: 048
     Dates: start: 20090101
  9. SEROQUEL [Suspect]
     Dosage: 50 MG TWICE A WEEK, IMMEDIATE RELEASE
     Route: 048
  10. SEROQUEL [Suspect]
     Route: 048
  11. SEROQUEL [Suspect]
     Route: 048
  12. CYMBALTA [Concomitant]
  13. SEROQUEL [Suspect]
     Dosage: 50 MG TWICE A WEEK, IMMEDIATE RELEASE
     Route: 048
  14. SEROQUEL [Suspect]
     Indication: BIPOLAR I DISORDER
     Dosage: 150 MG IMMEDIATE RELEASE
     Route: 048
  15. SEROQUEL [Suspect]
     Route: 048
     Dates: start: 20090101
  16. SEROQUEL [Suspect]
     Route: 048
  17. SEROQUEL [Suspect]
     Route: 048
  18. ABILIFY [Concomitant]
  19. SEROQUEL [Suspect]
     Route: 048
     Dates: start: 20090101
  20. SEROQUEL [Suspect]
     Route: 048
  21. SEROQUEL [Suspect]
     Route: 048
  22. ADVIAN [Concomitant]
  23. SEROQUEL [Suspect]
     Indication: MOOD SWINGS
     Dosage: 150 MG IMMEDIATE RELEASE
     Route: 048
  24. SEROQUEL [Suspect]
     Route: 048
  25. SEROQUEL [Suspect]
     Indication: SLEEP DISORDER
     Dosage: 150 MG IMMEDIATE RELEASE
     Route: 048
  26. SEROQUEL [Suspect]
     Route: 048
     Dates: start: 20090101
  27. SEROQUEL [Suspect]
     Route: 048
  28. SEROQUEL [Suspect]
     Route: 048
  29. LAMICTAL [Concomitant]
  30. LITHIUM CARBONATE [Concomitant]
  31. CLONAPINE [Concomitant]

REACTIONS (10)
  - BLOOD GLUCOSE INCREASED [None]
  - WEIGHT INCREASED [None]
  - OFF LABEL USE [None]
  - INSOMNIA [None]
  - HAIR TEXTURE ABNORMAL [None]
  - OEDEMA PERIPHERAL [None]
  - DRY MOUTH [None]
  - SOMNOLENCE [None]
  - FATIGUE [None]
  - INCREASED APPETITE [None]
